FAERS Safety Report 8018634-4 (Version None)
Quarter: 2012Q1

REPORT INFORMATION
  Report Type: 
  Country: None (occurrence: None)
  Receive Date: 20120103
  Receipt Date: 20111229
  Transmission Date: 20120608
  Serious: Yes (Hospitalization)
  Sender: FDA-Public Use
  Company Number: KR-PFIZER INC-2011300165

PATIENT
  Age: 48 Year
  Sex: Male
  Weight: 69 kg

DRUGS (7)
  1. SUNITINIB MALATE [Suspect]
     Indication: RENAL CELL CARCINOMA
     Dosage: 50 MG, 1X/DAY
     Route: 048
     Dates: start: 20110225, end: 20110618
  2. MAGMIL [Concomitant]
     Indication: LAXATIVE SUPPORTIVE CARE
     Dosage: 1500 MG, 1X/DAY
     Dates: start: 20110225
  3. ACETAMINOPHEN [Concomitant]
     Indication: HEADACHE
     Dosage: 1950 MG, 1X/DAY
     Dates: start: 20110225
  4. DUPHALAC [Concomitant]
     Indication: LAXATIVE SUPPORTIVE CARE
     Dosage: 20 ML, 1X/DAY
     Dates: start: 20110225
  5. TAMSULOSIN HCL [Concomitant]
     Indication: BENIGN PROSTATIC HYPERPLASIA
     Dosage: 0.2 MG, 1X/DAY
     Dates: start: 20110225
  6. OXYCONTIN [Concomitant]
     Indication: BONE PAIN
     Dosage: 40 MG, 1X/DAY
     Dates: start: 20110303
  7. MYOTONINE [Concomitant]
     Indication: MUSCLE RELAXANT THERAPY
     Dosage: 25 MG, 1X/DAY
     Dates: start: 20110225

REACTIONS (1)
  - PLEURAL EFFUSION [None]
